FAERS Safety Report 13873368 (Version 1)
Quarter: 2017Q3

REPORT INFORMATION
  Report Type: Spontaneous
  Country: US (occurrence: US)
  Receive Date: 20170816
  Receipt Date: 20170816
  Transmission Date: 20171127
  Serious: No
  Sender: FDA-Public Use
  Company Number: US-MALLINCKRODT-T201701080

PATIENT
  Sex: Male

DRUGS (1)
  1. ROXICODONE [Suspect]
     Active Substance: OXYCODONE HYDROCHLORIDE
     Indication: PAIN
     Dosage: 50 MG, UNK
     Route: 065

REACTIONS (2)
  - Therapeutic response shortened [Unknown]
  - Malaise [Unknown]
